FAERS Safety Report 14440618 (Version 4)
Quarter: 2018Q2

REPORT INFORMATION
  Report Type: Spontaneous
  Country: JP (occurrence: JP)
  Receive Date: 20180125
  Receipt Date: 20180406
  Transmission Date: 20180711
  Serious: Yes (Death, Other)
  Sender: FDA-Public Use
  Company Number: JP-ALLERGAN-1803770US

PATIENT
  Age: 62 Year
  Sex: Male

DRUGS (5)
  1. BROMHEXINE HYDROCHLORIDE [Concomitant]
     Active Substance: BROMHEXINE HYDROCHLORIDE
     Dosage: UNK
     Dates: start: 20161011, end: 20171203
  2. ZOTEPINE [Concomitant]
     Active Substance: ZOTEPINE
     Dosage: UNK
     Dates: end: 20171112
  3. MAGNESIUM OXIDE. [Concomitant]
     Active Substance: MAGNESIUM OXIDE
     Dosage: UNK
     Dates: start: 20120201, end: 20171203
  4. ASENAPINE MALEATE - BP [Suspect]
     Active Substance: ASENAPINE MALEATE
     Indication: SCHIZOPHRENIA
     Dosage: 10 MG, QD
     Route: 060
     Dates: start: 20171023, end: 20171203
  5. FLUNITRAZEPAM [Concomitant]
     Active Substance: FLUNITRAZEPAM
     Dosage: UNK
     Dates: start: 20161128, end: 20171203

REACTIONS (5)
  - Death [Fatal]
  - Inappropriate schedule of drug administration [Unknown]
  - Pyrexia [Recovered/Resolved]
  - Cardiac arrest [Unknown]
  - Drug ineffective [Unknown]

NARRATIVE: CASE EVENT DATE: 20171112
